FAERS Safety Report 7958166-2 (Version None)
Quarter: 2011Q4

REPORT INFORMATION
  Report Type: 
  Country: None (occurrence: None)
  Receive Date: 20111205
  Receipt Date: 20111129
  Transmission Date: 20120403
  Serious: Yes (Life-Threatening, Hospitalization)
  Sender: FDA-Public Use
  Company Number: US-ASTRAZENECA-2011SE59376

PATIENT
  Age: 49 Year
  Sex: Female
  Weight: 88 kg

DRUGS (10)
  1. TOPROL-XL [Suspect]
     Indication: HYPERTENSION
     Route: 048
     Dates: start: 19990101
  2. CRESTOR [Suspect]
     Indication: BLOOD CHOLESTEROL ABNORMAL
     Route: 048
     Dates: start: 20111001
  3. ZOLOFT [Concomitant]
     Indication: DEPRESSION
  4. PLAVIX [Concomitant]
     Indication: ANTICOAGULANT THERAPY
  5. SEROQUEL [Suspect]
     Indication: DEPRESSION
     Route: 048
     Dates: start: 20060101
  6. HCT WATERPILL [Concomitant]
     Indication: HYPERTENSION
  7. CRESTOR [Suspect]
     Indication: DYSLIPIDAEMIA
     Route: 048
     Dates: start: 20111001
  8. XANAX [Concomitant]
     Indication: ANXIETY
  9. TOPROL-XL [Suspect]
     Route: 048
  10. ASPIRIN [Concomitant]
     Indication: ANTICOAGULANT THERAPY
     Dosage: 325

REACTIONS (8)
  - HEADACHE [None]
  - ACUTE MYOCARDIAL INFARCTION [None]
  - HYPOAESTHESIA [None]
  - FATIGUE [None]
  - AORTIC STENOSIS [None]
  - ASTHENIA [None]
  - CORONARY ARTERY DISEASE [None]
  - CHEST PAIN [None]
